FAERS Safety Report 22289686 (Version 1)
Quarter: 2023Q2

REPORT INFORMATION
  Report Type: Spontaneous
  Country: US (occurrence: None)
  Receive Date: 20230504
  Receipt Date: 20230504
  Transmission Date: 20230721
  Serious: No
  Sender: FDA-Public Use
  Company Number: None

PATIENT
  Age: 49 Year
  Sex: Male

DRUGS (1)
  1. FLUTICASONE PROPIONATE [Suspect]
     Active Substance: FLUTICASONE PROPIONATE
     Indication: Hypersensitivity
     Dosage: OTHER QUANTITY : 1 SPRAY(S);?FREQUENCY : DAILY;?
     Route: 055
     Dates: start: 20230301, end: 20230503

REACTIONS (1)
  - Epistaxis [None]

NARRATIVE: CASE EVENT DATE: 20230430
